FAERS Safety Report 13281864 (Version 3)
Quarter: 2017Q2

REPORT INFORMATION
  Report Type: Spontaneous
  Country: FR (occurrence: FR)
  Receive Date: 20170301
  Receipt Date: 20170417
  Transmission Date: 20170830
  Serious: Yes (Other)
  Sender: FDA-Public Use
  Company Number: FR-SUN PHARMACEUTICAL INDUSTRIES LTD-2017RR-134565

PATIENT
  Age: 61 Year
  Sex: Male

DRUGS (1)
  1. DOXORUBICIN [Suspect]
     Active Substance: DOXORUBICIN
     Indication: KAPOSI^S SARCOMA
     Dosage: 20 MG/M2, ON DAY 1 EVERY 21 DAYS
     Route: 065

REACTIONS (2)
  - Extravasation [Recovered/Resolved]
  - Infusion site recall reaction [Recovered/Resolved]
